FAERS Safety Report 23663187 (Version 1)
Quarter: 2024Q1

REPORT INFORMATION
  Report Type: Report from Study
  Country: US (occurrence: US)
  Receive Date: 20240322
  Receipt Date: 20240322
  Transmission Date: 20240409
  Serious: Yes (Hospitalization, Other)
  Sender: FDA-Public Use
  Company Number: US-BAXTER-2024BAX015195

PATIENT
  Age: 55 Year
  Sex: Female
  Weight: 72.5 kg

DRUGS (17)
  1. CYCLOPHOSPHAMIDE [Suspect]
     Active Substance: CYCLOPHOSPHAMIDE
     Indication: Acute lymphocytic leukaemia
     Dosage: 150 MG/M2 CYCLIC (150 MG/M2, CYCLE 1,3,5,7: EVERY 12 HRS X 6 DOSES, DAYS 1-3)
     Route: 042
     Dates: start: 20231106
  2. MESNA [Suspect]
     Active Substance: MESNA
     Indication: Acute lymphocytic leukaemia
     Dosage: 300 MG/M2 CYCLIC (300 MG/M2, CYCLE 1,3, 5, 7: DAYS 1-3)
     Route: 065
     Dates: start: 20231106
  3. VINCRISTINE SULFATE [Suspect]
     Active Substance: VINCRISTINE SULFATE
     Indication: Acute lymphocytic leukaemia
     Dosage: 2 MG CYCLIC (2 MG, CYCLE 1,3, 5, 7: DAY 1, DAY 8)
     Route: 042
     Dates: start: 20231106
  4. INOTUZUMAB OZOGAMICIN [Suspect]
     Active Substance: INOTUZUMAB OZOGAMICIN
     Indication: Acute lymphocytic leukaemia
     Dosage: 0.55 MG
     Route: 065
     Dates: end: 20240117
  5. INOTUZUMAB OZOGAMICIN [Suspect]
     Active Substance: INOTUZUMAB OZOGAMICIN
     Dosage: UNK, CYCLIC (CYCLE: 1-4. CYCLE 1: TOTAL 0.9 MG/M2, 0.6 MG/M2 D2, 0.3 MG/M2 D8; CYCLES 2-4: TOTAL 0.6
     Route: 042
     Dates: start: 20231107
  6. CYTARABINE [Suspect]
     Active Substance: CYTARABINE
     Indication: Acute lymphocytic leukaemia
     Dosage: 3600 MG
     Route: 065
     Dates: end: 20240118
  7. CYTARABINE [Suspect]
     Active Substance: CYTARABINE
     Dosage: CYCLIC (0.5 G/M2/DOSE, CYCLE: 2,4, 6, 8, EVERY 12 HRS X 4 DOSES, DAYS 2, 3)
     Route: 042
  8. CYTARABINE [Suspect]
     Active Substance: CYTARABINE
     Dosage: 100 MG CYCLIC (100 MG, CYCLE: 1-4: DAY 2, DAY 8)
     Route: 037
     Dates: start: 20231107
  9. METHOTREXATE SODIUM [Suspect]
     Active Substance: METHOTREXATE SODIUM
     Indication: Acute lymphocytic leukaemia
     Dosage: 440 MG
     Route: 065
     Dates: end: 20240115
  10. METHOTREXATE SODIUM [Suspect]
     Active Substance: METHOTREXATE SODIUM
     Dosage: 250 MG/M2 CYCLIC (250 MG/M2, CYCLE 2,4, 6, 8: DAY 1)
     Route: 042
  11. METHOTREXATE SODIUM [Suspect]
     Active Substance: METHOTREXATE SODIUM
     Dosage: 12 MG CYCLIC (12 MG, CYCLE 1-4: DAY 2, DAY 8)
     Route: 037
     Dates: start: 20231107
  12. METHYLPREDNISOLONE [Suspect]
     Active Substance: METHYLPREDNISOLONE
     Indication: Acute lymphocytic leukaemia
     Dosage: 300 MG
     Route: 065
     Dates: end: 20240118
  13. METHYLPREDNISOLONE [Suspect]
     Active Substance: METHYLPREDNISOLONE
     Dosage: 50 MG CYCLIC (50 MG, CYCLE 2, 4, 6, 8: EVERY 12 HRS X 6 DOSES, DAYS 1-3)
     Route: 042
  14. RITUXIMAB [Suspect]
     Active Substance: RITUXIMAB
     Indication: Acute lymphocytic leukaemia
     Dosage: 1400 MG
     Route: 065
     Dates: end: 20240122
  15. RITUXIMAB [Suspect]
     Active Substance: RITUXIMAB
     Dosage: 375 MG/M2 CYCLIC (375 MG/M2, CYCLE: 1-4: DAY 2, DAY 8)
     Route: 042
     Dates: start: 20231107
  16. FILGRASTIM [Suspect]
     Active Substance: FILGRASTIM
     Indication: Acute lymphocytic leukaemia
     Dosage: 480 UG 1X/DAY (480 UG, QD X 2 DAYS)
     Route: 065
     Dates: start: 20240121, end: 20240122
  17. DEXAMETHASONE [Suspect]
     Active Substance: DEXAMETHASONE
     Indication: Acute lymphocytic leukaemia
     Dosage: 20 MG CYCLIC (20 MG, IV OR PO, CYCLE 1, 3, 5, 7: DAYS 1-4, DAYS 11-14)
     Route: 065
     Dates: start: 20231106

REACTIONS (1)
  - Febrile neutropenia [Recovering/Resolving]

NARRATIVE: CASE EVENT DATE: 20240126
